FAERS Safety Report 22247034 (Version 3)
Quarter: 2023Q2

REPORT INFORMATION
  Report Type: Spontaneous
  Country: PT (occurrence: PT)
  Receive Date: 20230424
  Receipt Date: 20230517
  Transmission Date: 20230722
  Serious: Yes (Other)
  Sender: FDA-Public Use
  Company Number: None

PATIENT
  Age: 76 Year
  Sex: Male
  Weight: 76.5 kg

DRUGS (10)
  1. VELTASSA [Suspect]
     Active Substance: PATIROMER
     Indication: Hyperkalaemia
     Dosage: 1 X DAY WITH A SNACK
     Route: 048
     Dates: start: 20221130, end: 20230323
  2. XARELTO [Concomitant]
     Active Substance: RIVAROXABAN
     Dosage: 1 TABLET AT LUNCH
     Route: 048
  3. OLODATEROL HYDROCHLORIDE\TIOTROPIUM BROMIDE MONOHYDRATE [Concomitant]
     Active Substance: OLODATEROL HYDROCHLORIDE\TIOTROPIUM BROMIDE MONOHYDRATE
     Dosage: STRENGTH: 2.5 UG/DOSE + 2.5 UG/DOSE, 1 INHALATION 1 X DAY
  4. SPIRONOLACTONE [Concomitant]
     Active Substance: SPIRONOLACTONE
     Dosage: 1 TABLET AT BREAKFAST
  5. PERINDOPRIL [Concomitant]
     Active Substance: PERINDOPRIL
     Dosage: 2 TABLETS AT BREAKFAST IN CASE OF HYPOTENSION/SYNCOPE
  6. ROSUVASTATIN [Concomitant]
     Active Substance: ROSUVASTATIN
     Dosage: 1 TABLET AT DINNER
  7. SILODOSIN [Concomitant]
     Active Substance: SILODOSIN
     Dosage: 1 TABLET AT BREAKFAST
  8. PENTOXIFYLLINE [Concomitant]
     Active Substance: PENTOXIFYLLINE
     Dosage: 1 TABLET AT BREAKFAST + 1 TABLET AT LUNCH + 1 TABLET AT DINNER
  9. DAPAGLIFLOZIN [Concomitant]
     Active Substance: DAPAGLIFLOZIN
     Dosage: 1 TABLET AT BREAKFAST
     Route: 048
  10. BISOPROLOL [Concomitant]
     Active Substance: BISOPROLOL
     Dosage: 1 TABLET AT BREAKFAST + 1 TABLET AT DINNER

REACTIONS (1)
  - Metabolic acidosis [Recovering/Resolving]

NARRATIVE: CASE EVENT DATE: 20230323
